FAERS Safety Report 21787293 (Version 4)
Quarter: 2023Q1

REPORT INFORMATION
  Report Type: Spontaneous
  Country: CA (occurrence: CA)
  Receive Date: 20221228
  Receipt Date: 20230227
  Transmission Date: 20230418
  Serious: Yes (Other)
  Sender: FDA-Public Use
  Company Number: CA-PFIZER INC-202201188114

PATIENT
  Age: 25 Year
  Sex: Male

DRUGS (2)
  1. ABRILADA [Suspect]
     Active Substance: ADALIMUMAB-AFZB
     Indication: Hidradenitis
     Dosage: 1 DF 160 MG ON WEEK 0, 80 MG ON WEEK 2, THEN 40 MG EVERY WEEK STARTING ON WEEK 4
     Route: 058
     Dates: start: 20220922
  2. ABRILADA [Suspect]
     Active Substance: ADALIMUMAB-AFZB
     Dosage: 1 DF 160 MG ON WEEK 0, 80 MG ON WEEK 2, THEN 40 MG EVERY WEEK STARTING ON WEEK 4
     Route: 058
     Dates: start: 20221229

REACTIONS (6)
  - Haemorrhage [Not Recovered/Not Resolved]
  - Asthenia [Not Recovered/Not Resolved]
  - Injection site haemorrhage [Recovered/Resolved]
  - Poor quality sleep [Not Recovered/Not Resolved]
  - Condition aggravated [Not Recovered/Not Resolved]
  - Rash [Not Recovered/Not Resolved]

NARRATIVE: CASE EVENT DATE: 20220101
